FAERS Safety Report 22320169 (Version 2)
Quarter: 2023Q2

REPORT INFORMATION
  Report Type: Spontaneous
  Country: ZA (occurrence: None)
  Receive Date: 20230515
  Receipt Date: 20230626
  Transmission Date: 20230722
  Serious: Yes (Other)
  Sender: FDA-Public Use
  Company Number: 2023A106874

PATIENT
  Sex: Female

DRUGS (2)
  1. IMFINZI [Suspect]
     Active Substance: DURVALUMAB
     Indication: Non-small cell lung cancer stage III
     Route: 042
     Dates: start: 202205, end: 202301
  2. OZONE [Concomitant]
     Active Substance: OZONE
     Dosage: UNKNOWN

REACTIONS (2)
  - Langerhans^ cell histiocytosis [Not Recovered/Not Resolved]
  - Fungal infection [Not Recovered/Not Resolved]
